FAERS Safety Report 7265102-3 (Version None)
Quarter: 2011Q1

REPORT INFORMATION
  Report Type: 
  Country: None (occurrence: None)
  Receive Date: 20110131
  Receipt Date: 20110126
  Transmission Date: 20110831
  Serious: Yes (Hospitalization)
  Sender: FDA-Public Use
  Company Number: RU-GENZYME-CAMP-1001225

PATIENT
  Sex: Female
  Weight: 68.6 kg

DRUGS (4)
  1. NORFLOXACIN [Concomitant]
     Indication: CYSTITIS NONINFECTIVE
     Dosage: 400 MG, BID
     Route: 065
     Dates: start: 20101102, end: 20101111
  2. CAMPATH [Suspect]
     Indication: MULTIPLE SCLEROSIS
     Dosage: 12 MG, QDX5
     Route: 042
     Dates: start: 20080519, end: 20080523
  3. CAMPATH [Suspect]
     Dosage: 12 MG, QDX3
     Route: 042
     Dates: start: 20090518, end: 20090520
  4. CAMPATH [Suspect]
     Dosage: 12 MG, QDX3
     Route: 042
     Dates: start: 20100614, end: 20100616

REACTIONS (1)
  - GLOMERULONEPHRITIS MEMBRANOUS [None]
